FAERS Safety Report 4845996-9 (Version None)
Quarter: 2005Q4

REPORT INFORMATION
  Report Type: 
  Country: None (occurrence: None)
  Receive Date: 20051206
  Receipt Date: 20051117
  Transmission Date: 20060501
  Serious: Yes (Other)
  Sender: FDA-Public Use
  Company Number: NL-AVENTIS-200514677EU

PATIENT
  Age: 64 Year
  Sex: Female

DRUGS (4)
  1. FUROSEMIDE [Suspect]
     Indication: RENAL FAILURE
  2. FUROSEMIDE [Suspect]
  3. SEVELAMER [Concomitant]
     Indication: HYPERPHOSPHATAEMIA
  4. SEVELAMER [Concomitant]

REACTIONS (2)
  - DRUG INTERACTION [None]
  - OLIGURIA [None]
